FAERS Safety Report 12660736 (Version 2)
Quarter: 2016Q3

REPORT INFORMATION
  Report Type: Spontaneous
  Country: US (occurrence: US)
  Receive Date: 20160817
  Receipt Date: 20160901
  Transmission Date: 20161109
  Serious: No
  Sender: FDA-Public Use
  Company Number: US-RELYPSA-RLY2016001194

PATIENT
  Sex: Female

DRUGS (23)
  1. ATIVAN [Concomitant]
     Active Substance: LORAZEPAM
  2. ISOSORBIDE DINITRATE. [Concomitant]
     Active Substance: ISOSORBIDE DINITRATE
  3. LASIX [Concomitant]
     Active Substance: FUROSEMIDE
  4. NAMENDA [Concomitant]
     Active Substance: MEMANTINE HYDROCHLORIDE
  5. REMERON [Concomitant]
     Active Substance: MIRTAZAPINE
  6. ASPIRIN                            /00002701/ [Concomitant]
     Active Substance: ASPIRIN
  7. METOPROLOL TARTRATE. [Concomitant]
     Active Substance: METOPROLOL TARTRATE
  8. SIMETHICONE (DIMETHICONE) [Concomitant]
     Active Substance: DIMETHICONE
  9. LEVEMIR [Concomitant]
     Active Substance: INSULIN DETEMIR
  10. NITROSTAT [Concomitant]
     Active Substance: NITROGLYCERIN
  11. NORVASC [Concomitant]
     Active Substance: AMLODIPINE BESYLATE
  12. GLIPIZIDE. [Concomitant]
     Active Substance: GLIPIZIDE
  13. XALATAN [Concomitant]
     Active Substance: LATANOPROST
  14. PREPARATION H HYDROCORTISONE [Concomitant]
     Active Substance: HYDROCORTISONE
  15. SENNA                              /00142201/ [Concomitant]
     Active Substance: SENNA LEAF
  16. SODIUM BICARBONATE. [Concomitant]
     Active Substance: SODIUM BICARBONATE
  17. TRAZODONE HYDROCHLORIDE. [Concomitant]
     Active Substance: TRAZODONE HYDROCHLORIDE
  18. LEVOTHYROXINE SODIUM. [Concomitant]
     Active Substance: LEVOTHYROXINE SODIUM
  19. VELTASSA [Suspect]
     Active Substance: PATIROMER
     Indication: HYPERKALAEMIA
     Dosage: 8.4 G, QD
     Route: 048
     Dates: start: 20160611
  20. LORAZEPAM. [Concomitant]
     Active Substance: LORAZEPAM
  21. HYDROCORTISONE. [Concomitant]
     Active Substance: HYDROCORTISONE
  22. TRAMADOL HCL [Concomitant]
     Active Substance: TRAMADOL HYDROCHLORIDE
  23. TYLENOL [Concomitant]
     Active Substance: ACETAMINOPHEN

REACTIONS (2)
  - Blood glucose increased [Unknown]
  - Constipation [Unknown]
